FAERS Safety Report 9140169 (Version 1)
Quarter: 2013Q1

REPORT INFORMATION
  Report Type: Spontaneous
  Country: GB (occurrence: GB)
  Receive Date: 20130305
  Receipt Date: 20130305
  Transmission Date: 20140127
  Serious: Yes (Life-Threatening)
  Sender: FDA-Public Use
  Company Number: GB-ASTRAZENECA-2013SE14200

PATIENT
  Age: 78 Year
  Sex: Female
  Weight: 76 kg

DRUGS (7)
  1. OMEPRAZOLE [Suspect]
     Route: 048
     Dates: start: 20110228, end: 20120918
  2. BISOPROLOL [Concomitant]
  3. FUROSEMIDE [Concomitant]
  4. METHYLDOPA [Concomitant]
  5. PARACETAMOL [Concomitant]
  6. SIMVASTATIN [Concomitant]
  7. WARFARIN [Concomitant]

REACTIONS (2)
  - Blood creatine increased [Recovering/Resolving]
  - Tubulointerstitial nephritis [Recovering/Resolving]
